FAERS Safety Report 17246738 (Version 6)
Quarter: 2020Q1

REPORT INFORMATION
  Report Type: Spontaneous
  Country: US (occurrence: US)
  Receive Date: 20200108
  Receipt Date: 20200312
  Transmission Date: 20200409
  Serious: No
  Sender: FDA-Public Use
  Company Number: US-PFIZER INC-2019357728

PATIENT
  Age: 78 Year
  Sex: Female

DRUGS (1)
  1. EFFEXOR XR [Suspect]
     Active Substance: VENLAFAXINE HYDROCHLORIDE
     Dosage: 150 MG, 2X/DAY
     Route: 048

REACTIONS (5)
  - Eye disorder [Unknown]
  - Prescribed overdose [Unknown]
  - Nervousness [Unknown]
  - Emotional disorder [Unknown]
  - Visual impairment [Unknown]
